FAERS Safety Report 21214244 (Version 2)
Quarter: 2022Q4

REPORT INFORMATION
  Report Type: Report from Study
  Country: US (occurrence: US)
  Receive Date: 20220816
  Receipt Date: 20221013
  Transmission Date: 20230113
  Serious: Yes (Other)
  Sender: FDA-Public Use
  Company Number: US-BRISTOL-MYERS SQUIBB COMPANY-2022-071902

PATIENT
  Age: 55 Year
  Sex: Male

DRUGS (1)
  1. ZEPOSIA [Suspect]
     Active Substance: OZANIMOD HYDROCHLORIDE
     Indication: Colitis ulcerative
     Route: 048
     Dates: start: 20220415

REACTIONS (4)
  - Inadequate diet [Unknown]
  - Systemic lupus erythematosus [Not Recovered/Not Resolved]
  - Cough [Not Recovered/Not Resolved]
  - Exercise lack of [Unknown]

NARRATIVE: CASE EVENT DATE: 20220709
